FAERS Safety Report 4445644-6 (Version None)
Quarter: 2004Q3

REPORT INFORMATION
  Report Type: 
  Country: None (occurrence: None)
  Receive Date: 20040907
  Receipt Date: 20040826
  Transmission Date: 20050211
  Serious: Yes (Hospitalization)
  Sender: FDA-Public Use
  Company Number: 2004PK01437

PATIENT
  Age: 71 Year
  Sex: Female
  Weight: 85 kg

DRUGS (11)
  1. BELOC-ZOK [Suspect]
     Indication: CARDIAC FAILURE CONGESTIVE
     Dosage: 200 MG QD PO
     Route: 048
     Dates: start: 20031001
  2. SEROQUEL [Suspect]
     Indication: BIPOLAR DISORDER
     Dosage: 50 MG DAILY PO
     Route: 048
  3. DEROXAT [Suspect]
     Indication: BIPOLAR DISORDER
     Dosage: 30 MG DAILY PO
     Route: 048
     Dates: start: 20031201
  4. ZYPREXA [Suspect]
     Indication: BIPOLAR DISORDER
     Dosage: 10 MG DAILY PO
     Route: 048
     Dates: start: 20031001
  5. TEMESTA [Suspect]
     Indication: BIPOLAR DISORDER
     Dosage: 2.5 MG DAILY PO
     Route: 048
     Dates: start: 20031001
  6. ELTROXIN ^GLAXO^ [Concomitant]
  7. TOREM [Concomitant]
  8. CO-DIOVAN [Concomitant]
  9. PRAVASTATIN SODIUM [Concomitant]
  10. ALDACTONE [Concomitant]
  11. MARCOUMAR [Concomitant]

REACTIONS (7)
  - AGITATION [None]
  - ANTICHOLINERGIC SYNDROME [None]
  - CONFUSIONAL STATE [None]
  - DRUG INTERACTION [None]
  - DRUG LEVEL INCREASED [None]
  - MYDRIASIS [None]
  - TACHYCARDIA [None]
